FAERS Safety Report 24052266 (Version 1)
Quarter: 2024Q3

REPORT INFORMATION
  Report Type: Spontaneous
  Country: FR (occurrence: FR)
  Receive Date: 20240704
  Receipt Date: 20240704
  Transmission Date: 20241016
  Serious: Yes (Other)
  Sender: SAMSUNG BIOEPIS
  Company Number: None

PATIENT
  Age: 76 Year
  Sex: Female
  Weight: 49 kg

DRUGS (3)
  1. TRASTUZUMAB [Suspect]
     Active Substance: TRASTUZUMAB
     Indication: Breast cancer
     Route: 051
     Dates: start: 20230420, end: 20240220
  2. PERTUZUMAB [Suspect]
     Active Substance: PERTUZUMAB
     Indication: Breast cancer
     Route: 051
     Dates: start: 20230420, end: 20240220
  3. PACLITAXEL [Concomitant]
     Active Substance: PACLITAXEL
     Indication: Product used for unknown indication
     Route: 051
     Dates: start: 20230420, end: 20230711

REACTIONS (1)
  - Encephalitis autoimmune [Unknown]

NARRATIVE: CASE EVENT DATE: 20240225
